FAERS Safety Report 8139214-6 (Version None)
Quarter: 2012Q1

REPORT INFORMATION
  Report Type: 
  Country: None (occurrence: None)
  Receive Date: 20120215
  Receipt Date: 20120213
  Transmission Date: 20120608
  Serious: Yes (Other)
  Sender: FDA-Public Use
  Company Number: US-PFIZER INC-2012017979

PATIENT
  Sex: Male

DRUGS (8)
  1. PLAVIX [Concomitant]
     Dosage: 75 MG, UNK
  2. NITROSTAT [Concomitant]
     Dosage: 0.4 MG, UNK
  3. ACETYLSALICYLIC ACID [Concomitant]
     Dosage: 81 MG, UNK
  4. RANITIDINE [Concomitant]
     Dosage: 150 MG, UNK
  5. LIPITOR [Suspect]
     Dosage: 40 MG, UNK
     Dates: start: 20030101
  6. LISINOPRIL [Concomitant]
     Dosage: 10 MG, UNK
  7. ISOSORBIDE [Concomitant]
     Dosage: 30 MG, UNK
  8. METOPROLOL [Concomitant]
     Dosage: 25 MG, UNK

REACTIONS (7)
  - MYOCARDIAL INFARCTION [None]
  - PARANOID PERSONALITY DISORDER [None]
  - LUNG NEOPLASM MALIGNANT [None]
  - CORONARY ARTERY DISEASE [None]
  - STENT PLACEMENT [None]
  - CARDIAC FAILURE CONGESTIVE [None]
  - WOUND CLOSURE [None]
